FAERS Safety Report 14174185 (Version 1)
Quarter: 2017Q4

REPORT INFORMATION
  Report Type: Spontaneous
  Country: US (occurrence: US)
  Receive Date: 20171109
  Receipt Date: 20171109
  Transmission Date: 20180321
  Serious: Yes (Other)
  Sender: FDA-Public Use
  Company Number: US-SUCAMPO PHARMACEUTICALS INC.-SPI201701384

PATIENT

DRUGS (20)
  1. AMITIZA [Suspect]
     Active Substance: LUBIPROSTONE
     Dosage: 24 MCG, BID, SAMPLES; 2 DOSES TOTAL
     Route: 048
     Dates: start: 2017, end: 2017
  2. AMITIZA [Suspect]
     Active Substance: LUBIPROSTONE
     Dosage: 24 MCG SAMPLES BID; 2 DOSES
     Route: 048
     Dates: start: 20171031, end: 20171031
  3. UNKNOWN [Concomitant]
     Active Substance: UNSPECIFIED INGREDIENT
     Indication: GASTROOESOPHAGEAL REFLUX DISEASE
     Dosage: 40 MG, QD
     Route: 048
  4. UNKNOWN [Concomitant]
     Active Substance: UNSPECIFIED INGREDIENT
     Indication: ATRIAL FIBRILLATION
     Dosage: 50 MG, TID
     Route: 048
  5. AMITIZA [Suspect]
     Active Substance: LUBIPROSTONE
     Indication: IRRITABLE BOWEL SYNDROME
     Dosage: 8 MCG, BID, SAMPLES
     Route: 048
     Dates: start: 201705, end: 2017
  6. ASPIRIN. [Concomitant]
     Active Substance: ASPIRIN
     Indication: PRODUCT USED FOR UNKNOWN INDICATION
     Dosage: 81 MG, QD
     Route: 048
  7. UNKNOWN [Concomitant]
     Active Substance: UNSPECIFIED INGREDIENT
     Dosage: 20 MEQ, QD
     Route: 048
  8. UNKNOWN [Concomitant]
     Active Substance: UNSPECIFIED INGREDIENT
     Indication: GASTROOESOPHAGEAL REFLUX DISEASE
     Dosage: 300 MG, ONE AT BEDTIME
     Route: 048
  9. AMITIZA [Suspect]
     Active Substance: LUBIPROSTONE
     Dosage: 8 MCG, BID
     Route: 048
     Dates: start: 2017, end: 2017
  10. UNKNOWN [Concomitant]
     Active Substance: UNSPECIFIED INGREDIENT
     Indication: PRODUCT USED FOR UNKNOWN INDICATION
     Dosage: 2 MG, ONE TABLET AT BEDTIME
     Route: 048
  11. AMITIZA [Suspect]
     Active Substance: LUBIPROSTONE
     Dosage: 8 MCG, BID
     Route: 048
     Dates: start: 2017, end: 2017
  12. UNKNOWN [Concomitant]
     Active Substance: UNSPECIFIED INGREDIENT
     Dosage: 100 MG, QD 1/2 TABLET
     Route: 048
  13. AMITIZA [Suspect]
     Active Substance: LUBIPROSTONE
     Dosage: 8 MCG, BID
     Route: 048
     Dates: start: 20171101
  14. UNKNOWN [Concomitant]
     Active Substance: UNSPECIFIED INGREDIENT
     Indication: PRODUCT USED FOR UNKNOWN INDICATION
     Dosage: 75/50 - 1/2 TABLET, QD
     Route: 048
  15. UNKNOWN [Concomitant]
     Active Substance: UNSPECIFIED INGREDIENT
     Dosage: 75 MG, QD, 1/2 TABLET
     Route: 048
  16. ACETAMINOPHEN. [Concomitant]
     Active Substance: ACETAMINOPHEN
     Dosage: UNK
     Route: 048
  17. UNKNOWN [Concomitant]
     Active Substance: UNSPECIFIED INGREDIENT
     Indication: ENERGY INCREASED
     Dosage: 20 MG, QD
     Route: 048
  18. VITAMIN B12 [Concomitant]
     Active Substance: CYANOCOBALAMIN
     Dosage: 1000 MCG, QD
     Route: 048
  19. UNKNOWN [Concomitant]
     Active Substance: UNSPECIFIED INGREDIENT
     Indication: PROSTATOMEGALY
     Dosage: 0.4 MG, ONE AT BEDTIME
     Route: 048
  20. UNKNOWN [Concomitant]
     Active Substance: UNSPECIFIED INGREDIENT
     Indication: PRODUCT USED FOR UNKNOWN INDICATION
     Dosage: 150 MG, QD AT BEDTIME
     Route: 048

REACTIONS (6)
  - Off label use [Unknown]
  - Abdominal pain [Unknown]
  - Joint injury [Unknown]
  - Cellulitis [Unknown]
  - Drug ineffective [Unknown]
  - Diarrhoea [Recovered/Resolved]

NARRATIVE: CASE EVENT DATE: 2017
